FAERS Safety Report 11453594 (Version 1)
Quarter: 2015Q3

REPORT INFORMATION
  Report Type: Report from Study
  Country: AT (occurrence: AT)
  Receive Date: 20150903
  Receipt Date: 20150903
  Transmission Date: 20151125
  Serious: Yes (Other)
  Sender: FDA-Public Use
  Company Number: PHHY2015AT073967

PATIENT
  Sex: Female
  Weight: 57 kg

DRUGS (3)
  1. AFINITOR [Suspect]
     Active Substance: EVEROLIMUS
     Dosage: 5 MG, QD
     Route: 048
     Dates: start: 20150806
  2. EXEMESTAN [Concomitant]
     Active Substance: EXEMESTANE
     Indication: BREAST CANCER
     Dosage: 25 MG, QD
     Route: 065
     Dates: start: 20150105
  3. AFINITOR [Suspect]
     Active Substance: EVEROLIMUS
     Indication: BREAST CANCER
     Dosage: 10 MG, QD
     Route: 048
     Dates: start: 20150105, end: 20150709

REACTIONS (13)
  - Pneumonitis [Recovered/Resolved]
  - Dyspnoea exertional [Recovered/Resolved]
  - Mucosal dryness [Unknown]
  - Haematocrit decreased [Unknown]
  - Second primary malignancy [Unknown]
  - Cough [Recovered/Resolved]
  - Anaemia [Recovered/Resolved]
  - Bone cancer [Unknown]
  - Lung disorder [Not Recovered/Not Resolved]
  - Granuloma [Unknown]
  - Respiratory tract infection [Recovered/Resolved]
  - Renal cyst [Unknown]
  - Blood lactate dehydrogenase increased [Not Recovered/Not Resolved]

NARRATIVE: CASE EVENT DATE: 201506
